FAERS Safety Report 8326616-8 (Version None)
Quarter: 2012Q2

REPORT INFORMATION
  Report Type: 
  Country: None (occurrence: None)
  Receive Date: 20120501
  Receipt Date: 20120423
  Transmission Date: 20120825
  Serious: Yes (Hospitalization, Other)
  Sender: FDA-Public Use
  Company Number: US-ASTRAZENECA-2011SE46972

PATIENT
  Age: 63 Year
  Sex: Female
  Weight: 64 kg

DRUGS (17)
  1. ACETAZOLAMIDE [Concomitant]
  2. CYMBALTA [Concomitant]
  3. ATIVAN [Concomitant]
  4. SEROQUEL [Suspect]
     Route: 048
  5. SPIRIVA [Concomitant]
  6. SEROQUEL [Suspect]
     Indication: BIPOLAR DISORDER
     Route: 048
  7. SEROQUEL [Suspect]
     Dosage: 200 MG, HALF TABLET
     Route: 048
  8. SEROQUEL [Suspect]
     Route: 048
     Dates: end: 20120301
  9. SYMBICORT [Concomitant]
     Route: 055
  10. NEXIUM [Concomitant]
     Route: 048
  11. DILTIAZEM [Concomitant]
  12. PROAIR HFA [Concomitant]
  13. HALDOL [Suspect]
  14. ZOLPIDEM [Concomitant]
  15. VICODIN [Concomitant]
     Dosage: AS NEEDED
  16. SEROQUEL [Suspect]
     Route: 048
     Dates: start: 20090101
  17. KLOR-CON [Concomitant]

REACTIONS (15)
  - CONFUSIONAL STATE [None]
  - GLAUCOMA [None]
  - ADVERSE DRUG REACTION [None]
  - INTENTIONAL DRUG MISUSE [None]
  - RENAL FAILURE [None]
  - EYE PRURITUS [None]
  - CATARACT [None]
  - MANIA [None]
  - ABNORMAL DREAMS [None]
  - MOOD SWINGS [None]
  - OBSESSIVE-COMPULSIVE DISORDER [None]
  - THINKING ABNORMAL [None]
  - DIARRHOEA [None]
  - EYELID PTOSIS [None]
  - PSYCHOMOTOR HYPERACTIVITY [None]
